FAERS Safety Report 4611346-6 (Version None)
Quarter: 2005Q1

REPORT INFORMATION
  Report Type: 
  Country: None (occurrence: None)
  Receive Date: 20050317
  Receipt Date: 20050307
  Transmission Date: 20050727
  Serious: Yes (Disabling)
  Sender: FDA-Public Use
  Company Number: JP-BRISTOL-MYERS SQUIBB COMPANY-12893897

PATIENT
  Age: 66 Year
  Sex: Female

DRUGS (5)
  1. ENDOXAN [Suspect]
     Indication: BREAST CANCER
     Dates: start: 20031106, end: 20031106
  2. FARMORUBICIN [Suspect]
     Indication: BREAST CANCER
     Dates: start: 20031106, end: 20031106
  3. DECADRON [Suspect]
     Indication: BREAST CANCER
     Dates: start: 20031106, end: 20031106
  4. GASTER D [Concomitant]
  5. SEROTONE [Concomitant]

REACTIONS (1)
  - CEREBRAL INFARCTION [None]
